FAERS Safety Report 12099260 (Version 2)
Quarter: 2016Q2

REPORT INFORMATION
  Report Type: Spontaneous
  Country: US (occurrence: US)
  Receive Date: 20160222
  Receipt Date: 20160428
  Transmission Date: 20160815
  Serious: Yes (Hospitalization, Other)
  Sender: FDA-Public Use
  Company Number: US-PFIZER INC-2016107145

PATIENT
  Age: 65 Year
  Sex: Male

DRUGS (4)
  1. DEPO-TESTOSTERONE [Suspect]
     Active Substance: TESTOSTERONE CYPIONATE
     Dosage: 400 MG, SINGLE (ONCE)
     Dates: start: 20130311, end: 20130311
  2. DEPO-TESTOSTERONE [Suspect]
     Active Substance: TESTOSTERONE CYPIONATE
     Dosage: 400 MG, SINGLE (ONCE)
     Dates: start: 20130712, end: 20130712
  3. DEPO-TESTOSTERONE [Suspect]
     Active Substance: TESTOSTERONE CYPIONATE
     Indication: HORMONE REPLACEMENT THERAPY
     Dosage: 400 MG, SINGLE (ONCE)
     Dates: start: 20130211, end: 20130211
  4. ANDRODERM [Suspect]
     Active Substance: TESTOSTERONE
     Indication: HORMONE REPLACEMENT THERAPY
     Dosage: 4 MG, DAILY (24 HOUR PATCH)
     Dates: start: 20130211, end: 20130313

REACTIONS (2)
  - Acute myocardial infarction [Unknown]
  - Decreased activity [Not Recovered/Not Resolved]

NARRATIVE: CASE EVENT DATE: 20130312
